FAERS Safety Report 25738053 (Version 1)
Quarter: 2025Q3

REPORT INFORMATION
  Report Type: Spontaneous
  Country: CN (occurrence: CN)
  Receive Date: 20250829
  Receipt Date: 20250829
  Transmission Date: 20251021
  Serious: Yes (Other)
  Sender: Onesource Specialty Pharma
  Company Number: CN-STRIDES ARCOLAB LIMITED-2025OS000525

PATIENT

DRUGS (2)
  1. PIPERACILLIN SODIUM\TAZOBACTAM SODIUM [Suspect]
     Active Substance: PIPERACILLIN SODIUM\TAZOBACTAM SODIUM
     Indication: Product used for unknown indication
     Route: 065
  2. SINTILIMAB [Suspect]
     Active Substance: SINTILIMAB
     Indication: Neoplasm malignant
     Route: 065

REACTIONS (3)
  - Oxygen saturation decreased [Unknown]
  - Platelet count decreased [Unknown]
  - Pyrexia [Unknown]
